FAERS Safety Report 13693417 (Version 1)
Quarter: 2017Q2

REPORT INFORMATION
  Report Type: Spontaneous
  Country: US (occurrence: US)
  Receive Date: 20170626
  Receipt Date: 20170626
  Transmission Date: 20170830
  Serious: Yes (Other)
  Sender: FDA-Public Use
  Company Number: None

PATIENT
  Age: 67 Year
  Sex: Female

DRUGS (3)
  1. VITAMINS [Concomitant]
     Active Substance: VITAMINS
  2. XIIDRA [Suspect]
     Active Substance: LIFITEGRAST
  3. ZIOPTAN [Concomitant]
     Active Substance: TAFLUPROST

REACTIONS (2)
  - Nocturia [None]
  - Renal pain [None]

NARRATIVE: CASE EVENT DATE: 20170501
